FAERS Safety Report 8532054-5 (Version None)
Quarter: 2012Q3

REPORT INFORMATION
  Report Type: 
  Country: None (occurrence: None)
  Receive Date: 20120723
  Receipt Date: 20120531
  Transmission Date: 20120928
  Serious: Yes (Other)
  Sender: FDA-Public Use
  Company Number: US-GLAXOSMITHKLINE-A0985291A

PATIENT
  Age: 27 Year
  Sex: Female

DRUGS (2)
  1. VIMPAT [Suspect]
     Indication: EPILEPSY
     Dosage: 400MG UNKNOWN
     Route: 065
  2. LAMICTAL [Suspect]
     Indication: EPILEPSY
     Dosage: 550MG UNKNOWN
     Route: 065

REACTIONS (2)
  - ABORTION SPONTANEOUS [None]
  - MATERNAL EXPOSURE DURING PREGNANCY [None]
